FAERS Safety Report 5649041-7 (Version None)
Quarter: 2008Q1

REPORT INFORMATION
  Report Type: 
  Country: None (occurrence: None)
  Receive Date: 20080131
  Receipt Date: 20070918
  Transmission Date: 20080703
  Serious: No
  Sender: FDA-Public Use
  Company Number: US200709003654

PATIENT
  Age: 65 Year
  Sex: Female
  Weight: 74.8 kg

DRUGS (1)
  1. BYETTA [Suspect]
     Indication: WEIGHT DECREASED
     Dosage: 5 UG, 2/D, SUBCUTANEOUS
     Route: 058
     Dates: start: 20070701

REACTIONS (5)
  - ABDOMINAL PAIN UPPER [None]
  - GASTRIC ULCER [None]
  - MOUTH ULCERATION [None]
  - PRURITUS GENERALISED [None]
  - WEIGHT DECREASED [None]
